FAERS Safety Report 10502518 (Version 2)
Quarter: 2014Q4

REPORT INFORMATION
  Report Type: Spontaneous
  Country: US (occurrence: None)
  Receive Date: 20141003
  Receipt Date: 20141208
  Transmission Date: 20150528
  Serious: Yes (Hospitalization)
  Sender: FDA-Public Use
  Company Number: QSC-2014-0663

PATIENT
  Age: 62 Year
  Sex: Female
  Weight: 113.4 kg

DRUGS (17)
  1. CYMBALTA [Concomitant]
     Active Substance: DULOXETINE HYDROCHLORIDE
  2. DILTIAZEM HYDROCHLORIDE. [Concomitant]
     Active Substance: DILTIAZEM HYDROCHLORIDE
  3. NEURONTIN [Concomitant]
     Active Substance: GABAPENTIN
  4. DILAUDID (HYDROMORPHONE HYDORCHLORIDE) [Concomitant]
  5. CLONIDINE. [Concomitant]
     Active Substance: CLONIDINE
  6. METHADONE [Concomitant]
     Active Substance: METHADONE HYDROCHLORIDE
  7. PREDNISONE. [Concomitant]
     Active Substance: PREDNISONE
  8. ESTRADIOL. [Concomitant]
     Active Substance: ESTRADIOL
  9. METHOTREXATE [Concomitant]
     Active Substance: METHOTREXATE
  10. CELEBREX [Concomitant]
     Active Substance: CELECOXIB
  11. FLONASE /0090832/ (MOMETASONE FUROATE) [Concomitant]
  12. H.P. ACTHAR [Suspect]
     Active Substance: CORTICOTROPIN
     Indication: ADDISON^S DISEASE
     Route: 058
     Dates: start: 201306, end: 201310
  13. BYSTOLIC [Concomitant]
     Active Substance: NEBIVOLOL HYDROCHLORIDE
  14. DIOVAN [Concomitant]
     Active Substance: VALSARTAN
  15. VITAMIN D3 [Concomitant]
     Active Substance: CHOLECALCIFEROL
  16. REMICADE [Concomitant]
     Active Substance: INFLIXIMAB
  17. SYNTHROID [Concomitant]
     Active Substance: LEVOTHYROXINE SODIUM

REACTIONS (3)
  - Osteomyelitis [None]
  - Leg amputation [None]
  - Infection [None]

NARRATIVE: CASE EVENT DATE: 20131016
